FAERS Safety Report 24865657 (Version 1)
Quarter: 2025Q1

REPORT INFORMATION
  Report Type: Spontaneous
  Country: US (occurrence: US)
  Receive Date: 20250121
  Receipt Date: 20250121
  Transmission Date: 20250408
  Serious: No
  Sender: CURRAX PHARMACEUTICALS
  Company Number: US-CURRAX PHARMACEUTICALS LLC-US-2023CUR003565

PATIENT
  Sex: Female

DRUGS (2)
  1. CONTRAVE [Suspect]
     Active Substance: BUPROPION HYDROCHLORIDE\NALTREXONE HYDROCHLORIDE
     Indication: Weight control
     Route: 065
  2. CONTRAVE [Suspect]
     Active Substance: BUPROPION HYDROCHLORIDE\NALTREXONE HYDROCHLORIDE
     Route: 065

REACTIONS (9)
  - Hangover [Recovering/Resolving]
  - Impaired work ability [Recovering/Resolving]
  - Illness [Recovering/Resolving]
  - Dizziness [Recovering/Resolving]
  - Dry mouth [Recovering/Resolving]
  - Headache [Recovering/Resolving]
  - Nausea [Recovering/Resolving]
  - Feeling abnormal [Recovering/Resolving]
  - Wrong technique in product usage process [Unknown]
